FAERS Safety Report 7958253-9 (Version None)
Quarter: 2011Q4

REPORT INFORMATION
  Report Type: 
  Country: None (occurrence: None)
  Receive Date: 20111205
  Receipt Date: 20111203
  Transmission Date: 20120403
  Serious: Yes (Hospitalization, Other)
  Sender: FDA-Public Use
  Company Number: EG-ROCHE-1018588

PATIENT
  Age: 28 Year
  Sex: Male

DRUGS (4)
  1. LEUCOVORIN CALCIUM [Suspect]
     Indication: GLIOBLASTOMA MULTIFORME
     Route: 065
     Dates: start: 20111201
  2. IRINOTECAN HCL [Suspect]
     Indication: GLIOBLASTOMA MULTIFORME
     Route: 065
     Dates: start: 20111201
  3. AVASTIN [Suspect]
     Indication: GLIOBLASTOMA MULTIFORME
     Route: 041
     Dates: start: 20111201
  4. FLUOROURACIL [Suspect]
     Indication: GLIOBLASTOMA MULTIFORME
     Route: 065
     Dates: start: 20111201

REACTIONS (2)
  - TUMOUR HAEMORRHAGE [None]
  - CONVULSION [None]
